FAERS Safety Report 24772491 (Version 1)
Quarter: 2024Q4

REPORT INFORMATION
  Report Type: Spontaneous
  Country: US (occurrence: US)
  Receive Date: 20241224
  Receipt Date: 20241224
  Transmission Date: 20250114
  Serious: Yes (Other)
  Sender: NOVITIUM PHARMA
  Company Number: US-NOVITIUMPHARMA-2024USNVP02943

PATIENT
  Age: 54 Year
  Sex: Female

DRUGS (4)
  1. PREDNISONE [Suspect]
     Active Substance: PREDNISONE
     Indication: Cogan^s syndrome
     Dosage: WEEKLY TAPER BY 10 MG
     Route: 048
  2. PREDNISONE [Suspect]
     Active Substance: PREDNISONE
     Dosage: DOSE WEEKLY TAPERED
     Route: 048
  3. PREDNISONE [Suspect]
     Active Substance: PREDNISONE
     Dosage: DOSE TAPERED
     Route: 048
  4. Immune-glubulin [Concomitant]
     Indication: Product used for unknown indication

REACTIONS (3)
  - Hepatotoxicity [Unknown]
  - Metastatic malignant melanoma [Unknown]
  - Iridocyclitis [Unknown]
